FAERS Safety Report 14855120 (Version 1)
Quarter: 2018Q2

REPORT INFORMATION
  Report Type: Spontaneous
  Country: US (occurrence: US)
  Receive Date: 20180507
  Receipt Date: 20180507
  Transmission Date: 20180711
  Serious: No
  Sender: FDA-Public Use
  Company Number: US-ROCHE-1929234

PATIENT
  Age: 72 Year

DRUGS (2)
  1. ESBRIET [Suspect]
     Active Substance: PIRFENIDONE
     Indication: PRODUCT USED FOR UNKNOWN INDICATION
     Dosage: 3 PILLS  3 TIMES A DAY
     Route: 065
     Dates: start: 201610, end: 20170429
  2. ESBRIET [Suspect]
     Active Substance: PIRFENIDONE
     Dosage: TAKING 2 IN MORNING , 3 IN AFTERNOON, 3 IN EVENING
     Route: 065
     Dates: start: 20170430

REACTIONS (2)
  - Inappropriate schedule of drug administration [Unknown]
  - No adverse event [Unknown]

NARRATIVE: CASE EVENT DATE: 20170430
